FAERS Safety Report 10583300 (Version 1)
Quarter: 2014Q4

REPORT INFORMATION
  Report Type: Spontaneous
  Country: US (occurrence: None)
  Receive Date: 20141112
  Receipt Date: 20141112
  Transmission Date: 20150529
  Serious: Yes (Death)
  Sender: FDA-Public Use
  Company Number: INS201410-000245

PATIENT
  Age: 69 Year
  Sex: Male

DRUGS (2)
  1. SUBSYS [Suspect]
     Active Substance: FENTANYL
     Indication: CANCER PAIN
     Dosage: 600 MCG, SUBLINGUAL ?
     Route: 060
  2. MORPHINE [Concomitant]
     Active Substance: MORPHINE

REACTIONS (1)
  - Neoplasm malignant [None]

NARRATIVE: CASE EVENT DATE: 20141024
